FAERS Safety Report 20745882 (Version 1)
Quarter: 2022Q2

REPORT INFORMATION
  Report Type: Spontaneous
  Country: US (occurrence: None)
  Receive Date: 20220424
  Receipt Date: 20220424
  Transmission Date: 20220720
  Serious: Yes (unspecified)
  Sender: FDA-Public Use
  Company Number: None

PATIENT
  Age: 70 Year
  Sex: Male
  Weight: 58.5 kg

DRUGS (7)
  1. TYLENOL WITH CODEINE [Suspect]
     Active Substance: ACETAMINOPHEN\CODEINE PHOSPHATE
     Indication: Intervertebral disc degeneration
     Route: 048
  2. MORPHINE [Suspect]
     Active Substance: MORPHINE
     Indication: Pain
     Route: 048
  3. MORPHINE [Suspect]
     Active Substance: MORPHINE
     Indication: Muscle spasms
  4. DEVICE [Concomitant]
     Active Substance: DEVICE
  5. PROTEIN [Concomitant]
     Active Substance: PROTEIN
  6. VITAMINS [Concomitant]
     Active Substance: VITAMINS
  7. c [Concomitant]

REACTIONS (5)
  - Dysphagia [None]
  - Product complaint [None]
  - Gastrooesophageal reflux disease [None]
  - Adverse drug reaction [None]
  - Inadequate analgesia [None]

NARRATIVE: CASE EVENT DATE: 20180202
